FAERS Safety Report 23178537 (Version 1)
Quarter: 2023Q4

REPORT INFORMATION
  Report Type: Spontaneous
  Country: US (occurrence: None)
  Receive Date: 20231113
  Receipt Date: 20231113
  Transmission Date: 20240109
  Serious: Yes (Hospitalization)
  Sender: FDA-Public Use
  Company Number: None

PATIENT
  Age: 51 Year
  Sex: Female

DRUGS (2)
  1. MYCOPHENOLIC ACID [Suspect]
     Active Substance: MYCOPHENOLIC ACID
     Indication: Renal transplant
     Dosage: MYCOPHENOLIC : DIRECTIONS: TK 3 TS PO BID?
     Route: 048
     Dates: start: 20221128
  2. TACROLIMUS [Suspect]
     Active Substance: TACROLIMUS
     Indication: Renal transplant
     Dosage: ?TACROLIMUS: DIRECTIONS:  TK 4 CS PO QAM AND 4 CS?
     Route: 048
     Dates: start: 20221128

REACTIONS (2)
  - Abdominal pain upper [None]
  - Therapy interrupted [None]

NARRATIVE: CASE EVENT DATE: 20231107
